FAERS Safety Report 6933345-1 (Version None)
Quarter: 2010Q3

REPORT INFORMATION
  Report Type: 
  Country: None (occurrence: None)
  Receive Date: 20100820
  Receipt Date: 20100812
  Transmission Date: 20110219
  Serious: No
  Sender: FDA-Public Use
  Company Number: US-US-EMD SERONO, INC.-7014283

PATIENT
  Sex: Female

DRUGS (3)
  1. REBIF [Suspect]
     Indication: MULTIPLE SCLEROSIS
     Route: 058
     Dates: start: 20080120, end: 20100501
  2. REBIF [Suspect]
     Route: 058
     Dates: start: 20100601
  3. ADVIL LIQUI-GELS [Concomitant]
     Indication: PREMEDICATION

REACTIONS (3)
  - FATIGUE [None]
  - INJECTION SITE HAEMATOMA [None]
  - RENAL IMPAIRMENT [None]
